FAERS Safety Report 5238721-3 (Version None)
Quarter: 2007Q1

REPORT INFORMATION
  Report Type: 
  Country: None (occurrence: None)
  Receive Date: 20070215
  Receipt Date: 20070213
  Transmission Date: 20070707
  Serious: Yes (Hospitalization)
  Sender: FDA-Public Use
  Company Number: JP-BOEHRINGER INGELHEIM PHARMACEUTICALS, INC.-2007-BP-01577NB

PATIENT
  Sex: Male

DRUGS (10)
  1. SPIRIVA [Suspect]
     Indication: CHRONIC OBSTRUCTIVE PULMONARY DISEASE
     Route: 048
     Dates: start: 20060617, end: 20061106
  2. EBRANTIL (URAPIDIL) [Concomitant]
     Indication: BENIGN PROSTATIC HYPERPLASIA
     Route: 048
     Dates: end: 20061206
  3. EBRANTIL (URAPIDIL) [Concomitant]
     Route: 048
     Dates: start: 20061206
  4. FLUTICASONE PROPIONATE [Concomitant]
     Indication: ASTHMA
     Route: 048
     Dates: start: 20051008
  5. KIPRES [Concomitant]
     Indication: ASTHMA
     Route: 048
     Dates: start: 20060607
  6. LASIX [Concomitant]
     Indication: CARDIAC FAILURE
     Route: 048
  7. HOKUNALIN: TAPE (TULOBUTEROL) [Concomitant]
     Indication: ASTHMA
     Route: 062
     Dates: start: 20060618
  8. DAONIL [Concomitant]
     Indication: DIABETES MELLITUS
     Route: 048
     Dates: start: 20020224
  9. DAONIL [Concomitant]
     Route: 048
     Dates: start: 20020209
  10. SLO-BID [Concomitant]
     Indication: ASTHMA
     Route: 048
     Dates: start: 19991123

REACTIONS (2)
  - PROSTATITIS [None]
  - URINARY RETENTION [None]
